FAERS Safety Report 25224220 (Version 1)
Quarter: 2025Q2

REPORT INFORMATION
  Report Type: Report from Study
  Country: US (occurrence: US)
  Receive Date: 20250422
  Receipt Date: 20250422
  Transmission Date: 20250717
  Serious: No
  Sender: SUNOVION
  Company Number: US-SUMITOMO PHARMA SWITZERLAND GMBH-2025SPA003805

PATIENT

DRUGS (2)
  1. ORGOVYX [Suspect]
     Active Substance: RELUGOLIX
     Indication: Prostate cancer
     Dosage: 120 MG, SINGLE
     Route: 048
     Dates: start: 20231028
  2. ERLEADA [Concomitant]
     Active Substance: APALUTAMIDE
     Route: 065

REACTIONS (3)
  - Feeling of body temperature change [Unknown]
  - Fatigue [Unknown]
  - Incorrect dose administered [Unknown]
